FAERS Safety Report 6448248-9 (Version None)
Quarter: 2009Q4

REPORT INFORMATION
  Report Type: 
  Country: None (occurrence: None)
  Receive Date: 20091120
  Receipt Date: 20091117
  Transmission Date: 20100525
  Serious: Yes (Other)
  Sender: FDA-Public Use
  Company Number: US-BRISTOL-MYERS SQUIBB COMPANY-14821656

PATIENT
  Age: 56 Year
  Sex: Male
  Weight: 93 kg

DRUGS (5)
  1. COUMADIN [Suspect]
     Indication: ATRIAL FIBRILLATION
     Dosage: STARTED 18 MONTHS AGO, STOPPED FOR 3 DAYS.
     Dates: start: 20070301
  2. CRESTOR [Concomitant]
  3. PROPECIA [Concomitant]
  4. MULTI-VITAMIN [Concomitant]
  5. MINERAL TAB [Concomitant]

REACTIONS (2)
  - ATRIAL FIBRILLATION [None]
  - INTERNATIONAL NORMALISED RATIO INCREASED [None]
